FAERS Safety Report 8244849-6 (Version None)
Quarter: 2012Q1

REPORT INFORMATION
  Report Type: 
  Country: None (occurrence: None)
  Receive Date: 20120329
  Receipt Date: 20110819
  Transmission Date: 20120608
  Serious: No
  Sender: FDA-Public Use
  Company Number: US-MYLANLABS-2011S1012384

PATIENT
  Age: 63 Year
  Sex: Male

DRUGS (12)
  1. FENTANYL-100 [Suspect]
     Indication: ANKYLOSING SPONDYLITIS
     Dosage: CHANGED Q48H
     Route: 062
     Dates: start: 20110401
  2. FENTANYL-100 [Suspect]
     Dosage: CHANGED Q48H
     Route: 062
     Dates: start: 20110603
  3. HYDROCODONE BITARTRATE [Concomitant]
  4. FENTANYL-100 [Suspect]
     Indication: BONE PAIN
     Dosage: CHANGED Q48H
     Route: 062
     Dates: start: 20110401
  5. FENTANYL-100 [Suspect]
     Dosage: CHANGED Q48H
     Route: 062
     Dates: start: 20110401, end: 20110603
  6. FENTANYL-100 [Suspect]
     Dosage: CHANGED Q48H
     Route: 062
     Dates: start: 20110401, end: 20110603
  7. FENTANYL-100 [Suspect]
     Dosage: CHANGED Q48H
     Route: 062
     Dates: start: 20110603
  8. PERCOCET [Concomitant]
  9. LAXATIVES [Concomitant]
  10. FENTANYL-100 [Suspect]
     Indication: NECK PAIN
     Dosage: CHANGED Q48H
     Route: 062
     Dates: start: 20110401
  11. FENTANYL-100 [Suspect]
     Dosage: CHANGED Q48H
     Route: 062
     Dates: start: 20110401, end: 20110603
  12. FENTANYL-100 [Suspect]
     Dosage: CHANGED Q48H
     Route: 062
     Dates: start: 20110603

REACTIONS (1)
  - DRUG WITHDRAWAL SYNDROME [None]
